FAERS Safety Report 8517709-0 (Version None)
Quarter: 2012Q3

REPORT INFORMATION
  Report Type: 
  Country: None (occurrence: None)
  Receive Date: 20120718
  Receipt Date: 20120711
  Transmission Date: 20120928
  Serious: Yes (Hospitalization)
  Sender: FDA-Public Use
  Company Number: US-CELGENEUS-163-21880-12071583

PATIENT
  Age: 78 Year
  Sex: Female
  Weight: 47.2 kg

DRUGS (20)
  1. HYDROMORPHONE HCL [Concomitant]
     Route: 065
  2. POTASSIUM CHLORIDE [Concomitant]
     Route: 065
  3. MIRALAX [Concomitant]
     Route: 065
  4. SODIUM CHLORIDE [Concomitant]
     Route: 065
  5. HYDROCHLOROTHIAZIDE [Concomitant]
     Route: 065
  6. DOCUSATE SODIUM [Concomitant]
     Route: 065
  7. ZOFRAN [Concomitant]
     Route: 065
  8. MAGNESIUM OXIDE [Concomitant]
     Route: 065
  9. METHADONE HCL [Concomitant]
     Route: 065
  10. CHLORHEXIDINE GLUCONATE [Concomitant]
     Route: 065
  11. LOSARTAN POTASSIUM [Concomitant]
     Route: 065
  12. LOVENOX [Concomitant]
     Route: 065
  13. MAGNESIUM HYDROXIDE TAB [Concomitant]
     Route: 065
  14. REVLIMID [Suspect]
     Indication: MULTIPLE MYELOMA
     Dosage: 15 MILLIGRAM
     Route: 048
     Dates: start: 20120109
  15. DEXAMETHASONE [Suspect]
     Indication: MULTIPLE MYELOMA
     Route: 048
     Dates: start: 20110727
  16. METOCLOPRAMIDE [Concomitant]
     Route: 065
  17. OMEPRAZOLE [Concomitant]
     Route: 065
  18. VELCADE [Suspect]
     Indication: MULTIPLE MYELOMA
     Route: 048
     Dates: start: 20110727
  19. SENNA-MINT WAF [Concomitant]
     Route: 065
  20. VALTREX [Concomitant]
     Route: 065

REACTIONS (2)
  - HEPATIC ENZYME INCREASED [None]
  - HYPERCALCAEMIA [None]
